FAERS Safety Report 8302964-2 (Version None)
Quarter: 2012Q2

REPORT INFORMATION
  Report Type: 
  Country: None (occurrence: None)
  Receive Date: 20120420
  Receipt Date: 20120413
  Transmission Date: 20120825
  Serious: Yes (Other)
  Sender: FDA-Public Use
  Company Number: GB-PFIZER INC-2012046402

PATIENT
  Age: 77 Year
  Sex: Female

DRUGS (2)
  1. XALATAN [Suspect]
     Indication: GLAUCOMA
     Dosage: 1 DROP BOTH EYES AT NIGHT
     Route: 047
     Dates: end: 20111001
  2. BRINZOLAMIDE [Concomitant]
     Indication: GLAUCOMA
     Dosage: 1 DF, 2X/DAY
     Route: 047
     Dates: end: 20111001

REACTIONS (1)
  - HYPERTENSION [None]
